FAERS Safety Report 7298032-1 (Version None)
Quarter: 2011Q1

REPORT INFORMATION
  Report Type: 
  Country: None (occurrence: None)
  Receive Date: 20110217
  Receipt Date: 20110211
  Transmission Date: 20110831
  Serious: No
  Sender: FDA-Public Use
  Company Number: US-PFIZER INC-2011031343

PATIENT
  Age: 61 Year
  Sex: Female

DRUGS (4)
  1. METFORMIN HCL [Suspect]
     Dosage: UNK
     Dates: start: 20090101
  2. AMLODIPINE BESILATE [Concomitant]
     Indication: HYPERTENSION
     Dosage: 5 MG, UNK
  3. NIASPAN [Suspect]
     Dosage: 500 MG, 2X/DAY
     Dates: start: 20101201
  4. ACCUPRIL [Suspect]
     Indication: HYPERTENSION
     Dosage: 20 MG DAILY

REACTIONS (3)
  - SKIN BURNING SENSATION [None]
  - URTICARIA [None]
  - FLUSHING [None]
